FAERS Safety Report 9251764 (Version 1)
Quarter: 2013Q2

REPORT INFORMATION
  Report Type: Spontaneous
  Country: TW (occurrence: TW)
  Receive Date: 20130424
  Receipt Date: 20130424
  Transmission Date: 20140414
  Serious: Yes (Life-Threatening, Hospitalization)
  Sender: FDA-Public Use
  Company Number: TW-MYLANLABS-2013S1008381

PATIENT
  Age: 37 Year
  Sex: Female

DRUGS (3)
  1. EFAVIRENZ [Suspect]
     Indication: HIV INFECTION
     Route: 065
  2. LAMIVUDINE [Suspect]
     Indication: HIV INFECTION
     Route: 065
  3. ZIDOVUDINE [Suspect]
     Indication: HIV INFECTION
     Route: 065

REACTIONS (6)
  - Hypercalcaemia [Recovering/Resolving]
  - Renal failure acute [Recovering/Resolving]
  - Sinus tachycardia [Recovering/Resolving]
  - Mycobacterium avium complex infection [Recovered/Resolved]
  - Lung infection [Recovered/Resolved]
  - Immune reconstitution inflammatory syndrome [Recovering/Resolving]
